FAERS Safety Report 8813976 (Version 1)
Quarter: 2012Q4

REPORT INFORMATION
  Report Type: Spontaneous
  Country: US (occurrence: None)
  Receive Date: 20120926
  Receipt Date: 20120926
  Transmission Date: 20130627
  Serious: Yes (Other)
  Sender: FDA-Public Use
  Company Number: None

PATIENT
  Age: 70 Year
  Sex: Male

DRUGS (1)
  1. PLERIXAFOR [Suspect]
     Indication: ACUTE MYELOID LEUKAEMIA
     Dosage: 750 mcg/kg/d IV qd
Therapy Dates   09/23-09/24
     Route: 042

REACTIONS (2)
  - Aphasia [None]
  - Speech disorder [None]
